FAERS Safety Report 4911858-1 (Version None)
Quarter: 2006Q1

REPORT INFORMATION
  Report Type: 
  Country: None (occurrence: None)
  Receive Date: 20060215
  Receipt Date: 20060131
  Transmission Date: 20060701
  Serious: Yes (Other)
  Sender: FDA-Public Use
  Company Number: PHBS2006MX02415

PATIENT
  Age: 56 Year
  Sex: Female

DRUGS (2)
  1. DIOVAN HCT [Suspect]
     Indication: HYPERTENSION
     Dosage: VALS 160 / HCT 12.5 MG/DAY
     Route: 048
     Dates: start: 20051201
  2. METOPROLOL [Concomitant]
     Indication: HYPERTENSION
     Dosage: 200 MG/DAY
     Dates: start: 20051201, end: 20060201

REACTIONS (3)
  - BLOOD PRESSURE INCREASED [None]
  - HYPERTENSION [None]
  - LENS IMPLANT [None]
